FAERS Safety Report 6516484-9 (Version None)
Quarter: 2009Q4

REPORT INFORMATION
  Report Type: 
  Country: None (occurrence: None)
  Receive Date: 20091223
  Receipt Date: 20091123
  Transmission Date: 20100525
  Serious: No
  Sender: FDA-Public Use
  Company Number: US-BAYER-200942159NA

PATIENT
  Sex: Female

DRUGS (2)
  1. MAGNEVIST [Suspect]
     Indication: NUCLEAR MAGNETIC RESONANCE IMAGING
     Dosage: TOTAL DAILY DOSE: 18 ML
     Dates: start: 20091026, end: 20091026
  2. MAGNEVIST [Suspect]
     Dosage: TOTAL DAILY DOSE: 17 ML
     Dates: start: 20091105, end: 20091105

REACTIONS (5)
  - CONTUSION [None]
  - ERYTHEMA [None]
  - EXFOLIATIVE RASH [None]
  - MELANOCYTIC NAEVUS [None]
  - SKIN EXFOLIATION [None]
